FAERS Safety Report 16869182 (Version 1)
Quarter: 2019Q3

REPORT INFORMATION
  Report Type: Report from Study
  Country: TW (occurrence: TW)
  Receive Date: 20190930
  Receipt Date: 20190930
  Transmission Date: 20191005
  Serious: Yes (Hospitalization)
  Sender: FDA-Public Use
  Company Number: TW-PFIZER INC-2019379059

PATIENT
  Age: 83 Year
  Sex: Male
  Weight: 55.5 kg

DRUGS (4)
  1. AVELUMAB [Suspect]
     Active Substance: AVELUMAB
     Indication: TRANSITIONAL CELL CARCINOMA
  2. AXITINIB [Suspect]
     Active Substance: AXITINIB
     Indication: TRANSITIONAL CELL CARCINOMA
  3. AVELUMAB [Suspect]
     Active Substance: AVELUMAB
     Indication: NON-SMALL CELL LUNG CANCER
     Dosage: 800 MG, EVERY 2 WEEKS
     Route: 041
     Dates: start: 20190201, end: 20190830
  4. AXITINIB [Suspect]
     Active Substance: AXITINIB
     Indication: NON-SMALL CELL LUNG CANCER
     Dosage: 2 MG, 2X/DAY DAILY
     Route: 048
     Dates: start: 20190201, end: 20190830

REACTIONS (2)
  - Acute pulmonary oedema [Recovered/Resolved]
  - Hepatitis acute [Recovered/Resolved]

NARRATIVE: CASE EVENT DATE: 20190831
